FAERS Safety Report 7567527 (Version 7)
Quarter: 2013Q2

REPORT INFORMATION
  Report Type: Spontaneous
  Country: US (occurrence: US)
  Receive Date: 20100831
  Receipt Date: 20130520
  Transmission Date: 20140414
  Serious: Yes (Life-Threatening, Hospitalization, Other)
  Sender: FDA-Public Use
  Company Number: US-BAYER-201031781NA

PATIENT
  Age: 24 Year
  Sex: Female
  Weight: 71.2 kg

DRUGS (12)
  1. YAZ [Suspect]
     Indication: ACNE
     Dosage: UNK
     Dates: start: 20081219, end: 20090301
  2. YAZ [Suspect]
     Indication: ABDOMINAL DISTENSION
     Dosage: UNK
     Route: 048
     Dates: start: 200901, end: 20090301
  3. YAZ [Suspect]
     Indication: CONTRACEPTION
  4. ATIVAN [Concomitant]
  5. LOTEMAX [Concomitant]
  6. TRIAMCINOLONE [TRIAMCINOLONE] [Concomitant]
  7. BUSPAR [Concomitant]
     Dosage: 15 MG, UNK
  8. FLEXERIL [Concomitant]
     Dosage: 10 MG, UNK
  9. KENALOG [Concomitant]
  10. ZOLOFT [Concomitant]
     Indication: DEPRESSION
     Route: 048
  11. LORAZEPAM [Concomitant]
     Indication: ANXIETY
     Dosage: UNK UNK, PRN
     Route: 048
  12. INDERAL [Concomitant]
     Indication: MIGRAINE PROPHYLAXIS
     Dosage: 20 MG, BID
     Route: 048

REACTIONS (26)
  - Pulmonary embolism [Recovered/Resolved with Sequelae]
  - Deep vein thrombosis [None]
  - Dyspnoea [Recovered/Resolved with Sequelae]
  - Cardio-respiratory arrest [Recovered/Resolved with Sequelae]
  - Coma [Recovered/Resolved with Sequelae]
  - Tachycardia [None]
  - Brain injury [Not Recovered/Not Resolved]
  - Psychological trauma [Not Recovered/Not Resolved]
  - Blindness cortical [Not Recovered/Not Resolved]
  - Cognitive disorder [Not Recovered/Not Resolved]
  - Muscle spasms [Not Recovered/Not Resolved]
  - Autonomic nervous system imbalance [Not Recovered/Not Resolved]
  - Orthostatic hypotension [Not Recovered/Not Resolved]
  - Ataxia [Not Recovered/Not Resolved]
  - Memory impairment [Not Recovered/Not Resolved]
  - Speech disorder [Not Recovered/Not Resolved]
  - Anxiety [None]
  - Depression [None]
  - Suicide attempt [None]
  - Tibia fracture [None]
  - Concussion [None]
  - Facial bones fracture [None]
  - Tooth fracture [None]
  - Amnesia [Not Recovered/Not Resolved]
  - Pain in extremity [None]
  - Dyskinesia [None]
